FAERS Safety Report 24207159 (Version 1)
Quarter: 2024Q3

REPORT INFORMATION
  Report Type: Spontaneous
  Country: US (occurrence: US)
  Receive Date: 20240813
  Receipt Date: 20240813
  Transmission Date: 20241016
  Serious: No
  Sender: SANOFI AVENTIS
  Company Number: US-SA-SAC20240809001444

PATIENT
  Age: 64 Year
  Sex: Female
  Weight: 128.3 kg

DRUGS (2)
  1. DUPIXENT [Suspect]
     Active Substance: DUPILUMAB
     Indication: Dermatitis atopic
     Dosage: 300 MG, QOW
     Route: 058
     Dates: start: 20231205
  2. HYALURONIC ACID [Concomitant]
     Active Substance: HYALURONIC ACID

REACTIONS (2)
  - Skin depigmentation [Not Recovered/Not Resolved]
  - Drug ineffective [Not Recovered/Not Resolved]
